FAERS Safety Report 16935590 (Version 1)
Quarter: 2019Q4

REPORT INFORMATION
  Report Type: Spontaneous
  Country: US (occurrence: US)
  Receive Date: 20191018
  Receipt Date: 20191018
  Transmission Date: 20200122
  Serious: No
  Sender: FDA-Public Use
  Company Number: US-SA-2019SA289264

PATIENT
  Age: 50 Year
  Sex: Female

DRUGS (1)
  1. ALLEGRA ALLERGY [Suspect]
     Active Substance: FEXOFENADINE HYDROCHLORIDE
     Dosage: UNK
     Route: 065
     Dates: start: 201904

REACTIONS (4)
  - Ear congestion [Unknown]
  - Drug ineffective [Unknown]
  - Cerebral congestion [Unknown]
  - Insomnia [Unknown]
